FAERS Safety Report 7611409-7 (Version None)
Quarter: 2011Q3

REPORT INFORMATION
  Report Type: 
  Country: None (occurrence: None)
  Receive Date: 20110715
  Receipt Date: 20110706
  Transmission Date: 20111222
  Serious: Yes (Hospitalization)
  Sender: FDA-Public Use
  Company Number: IT-ROCHE-788034

PATIENT
  Sex: Male
  Weight: 62 kg

DRUGS (5)
  1. OXALIPLATIN [Suspect]
     Dosage: TEMPORARILY INTERRUPTED, DOSAGE FORM: 85 MG/MG
     Route: 042
     Dates: start: 20110328, end: 20110705
  2. IRINOTECAN HCL [Suspect]
     Dosage: TEMPORARILY INTERRUPTED, DOSAGE FORM: 165 MG/ME2
     Route: 042
     Dates: start: 20110320, end: 20110705
  3. FLUOROURACIL [Suspect]
     Dosage: TEMPORARILY INTERRUPTED, DOSAGE FORM: 3200 MG/MG
     Route: 042
     Dates: start: 20110328, end: 20110605
  4. LANSOPRAZOLE [Concomitant]
     Dates: start: 20110328
  5. BEVACIZUMAB [Suspect]
     Dosage: TEMPORARILY INTERRUPTED, DOSAGE FORM: 5 MG/KG
     Route: 042
     Dates: start: 20110328, end: 20110705

REACTIONS (2)
  - MUCOSAL INFLAMMATION [None]
  - PYREXIA [None]
